FAERS Safety Report 5243518-4 (Version None)
Quarter: 2007Q1

REPORT INFORMATION
  Report Type: 
  Country: None (occurrence: None)
  Receive Date: 20070222
  Receipt Date: 20070218
  Transmission Date: 20070707
  Serious: Yes (Death, Hospitalization, Other)
  Sender: FDA-Public Use
  Company Number: PHBS2007EG03062

PATIENT
  Age: 54 Year
  Sex: Female
  Weight: 55 kg

DRUGS (6)
  1. VOLTAREN [Suspect]
     Indication: BACK PAIN
     Dosage: 75 MG/DAY
     Route: 030
     Dates: start: 20070125
  2. VOLTAREN [Suspect]
     Dosage: 75 MG/DAY
     Route: 030
     Dates: start: 20070127
  3. ROWACHOL [Concomitant]
     Indication: PAIN
  4. FLAGYL [Concomitant]
     Dosage: 500 MG/DAY
  5. CIPROFLOXACIN [Concomitant]
  6. FLUMOX [Concomitant]

REACTIONS (11)
  - ADRENAL INSUFFICIENCY [None]
  - CYANOSIS [None]
  - DRUG ADMINISTERED AT INAPPROPRIATE SITE [None]
  - DRUG HYPERSENSITIVITY [None]
  - GASTROINTESTINAL TUBE INSERTION [None]
  - HYPOTENSION [None]
  - LEUKOCYTOSIS [None]
  - PULMONARY EMBOLISM [None]
  - SEPSIS [None]
  - SOMNOLENCE [None]
  - STRESS ULCER [None]
